FAERS Safety Report 6788056-2 (Version None)
Quarter: 2010Q2

REPORT INFORMATION
  Report Type: 
  Country: None (occurrence: None)
  Receive Date: 20100623
  Receipt Date: 20080229
  Transmission Date: 20101027
  Serious: Yes (Hospitalization)
  Sender: FDA-Public Use
  Company Number: US-PFIZER INC-2007096462

PATIENT
  Sex: Male
  Weight: 83.5 kg

DRUGS (13)
  1. SUTENT [Suspect]
     Indication: RENAL CELL CARCINOMA
     Route: 048
     Dates: start: 20071018
  2. ALL OTHER THERAPEUTIC PRODUCTS [Concomitant]
  3. ACETYLSALICYLIC ACID [Concomitant]
  4. HYDROCHLOROTHIAZIDE [Concomitant]
  5. METOPROLOL TARTRATE [Concomitant]
     Dosage: 1 EVERY 72 HOURS
  6. PRAVASTATIN [Concomitant]
  7. RANITIDINE [Concomitant]
  8. FENTANYL [Concomitant]
  9. FLUOXETINE HCL [Concomitant]
  10. DILAUDID [Concomitant]
     Dosage: 1 TO 2
  11. DOXAZOSIN MESYLATE [Concomitant]
  12. COMPAZINE [Concomitant]
  13. ALBUTEROL [Concomitant]
     Route: 055

REACTIONS (1)
  - BLOOD CREATININE INCREASED [None]
